FAERS Safety Report 7386329-6 (Version None)
Quarter: 2011Q1

REPORT INFORMATION
  Report Type: 
  Country: None (occurrence: None)
  Receive Date: 20110331
  Receipt Date: 20110318
  Transmission Date: 20110831
  Serious: Yes (Other)
  Sender: FDA-Public Use
  Company Number: PHHY2010TW89399

PATIENT
  Sex: Female

DRUGS (1)
  1. GLEEVEC [Suspect]
     Indication: GASTROINTESTINAL STROMAL TUMOUR
     Dosage: 400 MG, UNK
     Route: 048

REACTIONS (7)
  - DIARRHOEA [None]
  - DIZZINESS [None]
  - ANAEMIA [None]
  - INSOMNIA [None]
  - POOR QUALITY SLEEP [None]
  - ABNORMAL FAECES [None]
  - OSTEOPOROSIS [None]
